FAERS Safety Report 25839257 (Version 1)
Quarter: 2025Q3

REPORT INFORMATION
  Report Type: Spontaneous
  Country: JP (occurrence: JP)
  Receive Date: 20250924
  Receipt Date: 20250924
  Transmission Date: 20251020
  Serious: Yes (Hospitalization, Other)
  Sender: ROCHE
  Company Number: JP-CHUGAI-2025029838

PATIENT
  Age: 58 Year
  Sex: Male

DRUGS (8)
  1. CELLCEPT [Suspect]
     Active Substance: MYCOPHENOLATE MOFETIL
     Indication: Prophylaxis against transplant rejection
     Dosage: 1000MG/DAY
     Route: 050
  2. TACROLIMUS [Concomitant]
     Active Substance: TACROLIMUS
     Route: 050
  3. EVEROLIMUS [Concomitant]
     Active Substance: EVEROLIMUS
     Route: 050
  4. PREDNISOLONE [Concomitant]
     Active Substance: PREDNISOLONE
     Route: 050
  5. PREDNISOLONE [Concomitant]
     Active Substance: PREDNISOLONE
     Route: 050
  6. RAMOSETRON HYDROCHLORIDE [Concomitant]
     Active Substance: RAMOSETRON HYDROCHLORIDE
     Route: 050
  7. CARVEDILOL [Concomitant]
     Active Substance: CARVEDILOL
     Route: 050
  8. ALENDRONATE [Concomitant]
     Active Substance: ALENDRONATE SODIUM
     Route: 050

REACTIONS (3)
  - Colitis ulcerative [Unknown]
  - Chronic active Epstein-Barr virus infection [Unknown]
  - Enteritis infectious [Unknown]
